FAERS Safety Report 10046869 (Version 2)
Quarter: 2014Q4

REPORT INFORMATION
  Report Type: Spontaneous
  Country: US (occurrence: US)
  Receive Date: 20140331
  Receipt Date: 20141216
  Transmission Date: 20150528
  Serious: Yes (Other)
  Sender: FDA-Public Use
  Company Number: US-BAYER-2014-046190

PATIENT
  Sex: Female
  Weight: 63.39 kg

DRUGS (1)
  1. ANGELIQ [Suspect]
     Active Substance: DROSPIRENONE\ESTRADIOL
     Indication: HORMONE REPLACEMENT THERAPY
     Dosage: 0.5-1 MG
     Route: 048
     Dates: start: 200704, end: 20140221

REACTIONS (5)
  - Nipple disorder [Not Recovered/Not Resolved]
  - Invasive ductal breast carcinoma [Not Recovered/Not Resolved]
  - Lung disorder [Not Recovered/Not Resolved]
  - Benign breast neoplasm [Not Recovered/Not Resolved]
  - Breast mass [Not Recovered/Not Resolved]
